FAERS Safety Report 23487728 (Version 1)
Quarter: 2024Q1

REPORT INFORMATION
  Report Type: Spontaneous
  Country: CA (occurrence: CA)
  Receive Date: 20240206
  Receipt Date: 20240206
  Transmission Date: 20240409
  Serious: Yes (Other)
  Sender: FDA-Public Use
  Company Number: CA-AMGEN-CANSP2024022585

PATIENT

DRUGS (1)
  1. APREMILAST [Suspect]
     Active Substance: APREMILAST
     Indication: Psoriasis
     Dosage: UNK
     Route: 065

REACTIONS (22)
  - Pneumonia [Unknown]
  - Urinary tract disorder [Unknown]
  - Adverse event [Unknown]
  - Nasopharyngitis [Unknown]
  - Urinary tract infection [Unknown]
  - Cardiac disorder [Unknown]
  - Nervous system disorder [Unknown]
  - Gastrointestinal disorder [Unknown]
  - Diarrhoea [Unknown]
  - Nausea [Unknown]
  - Infection [Unknown]
  - Weight decreased [Unknown]
  - Malnutrition [Unknown]
  - Musculoskeletal disorder [Unknown]
  - Mental disorder [Unknown]
  - Renal disorder [Unknown]
  - Skin disorder [Unknown]
  - Pruritus [Unknown]
  - Headache [Unknown]
  - Administration site reaction [Unknown]
  - Metabolic disorder [Unknown]
  - Connective tissue disorder [Unknown]
